FAERS Safety Report 21775353 (Version 1)
Quarter: 2022Q4

REPORT INFORMATION
  Report Type: Other
  Country: CN (occurrence: None)
  Receive Date: 20221225
  Receipt Date: 20221225
  Transmission Date: 20230113
  Serious: Yes (Death)
  Sender: FDA-Public Use
  Company Number: CN-ROCHE-3245913

PATIENT

DRUGS (1)
  1. TRASTUZUMAB [Suspect]
     Active Substance: TRASTUZUMAB
     Indication: Metastatic gastric cancer
     Dosage: EVERY 3 WEEKS (8 MG FOR THE FIRST DOSE AND 6 MG EVERY 3 WEEKS THEREAFTER)
     Route: 065

REACTIONS (1)
  - Myelosuppression [Fatal]
